FAERS Safety Report 14984697 (Version 2)
Quarter: 2018Q2

REPORT INFORMATION
  Report Type: Report from Study
  Country: CN (occurrence: CN)
  Receive Date: 20180607
  Receipt Date: 20180611
  Transmission Date: 20180711
  Serious: Yes (Hospitalization)
  Sender: FDA-Public Use
  Company Number: CN-JNJFOC-20171233300

PATIENT
  Age: 51 Year
  Sex: Male
  Weight: 85 kg

DRUGS (18)
  1. METOPROLOL. [Concomitant]
     Active Substance: METOPROLOL
     Indication: ATRIAL FIBRILLATION
     Route: 048
     Dates: start: 20171208, end: 20171214
  2. PHOSPHOCREATINE [Concomitant]
     Active Substance: PHOSPHOCREATINE
     Indication: CARDIOMYOPATHY
     Route: 041
     Dates: start: 20171208, end: 20171209
  3. PERINDOPRIL [Concomitant]
     Active Substance: PERINDOPRIL
     Indication: CARDIAC FAILURE
     Route: 048
     Dates: start: 20171010
  4. FUROSEMIDUM [Concomitant]
     Active Substance: FUROSEMIDE
     Indication: CARDIAC FAILURE
     Route: 048
     Dates: start: 20171010
  5. XARELTO [Suspect]
     Active Substance: RIVAROXABAN
     Indication: CEREBROVASCULAR ACCIDENT
     Route: 048
     Dates: start: 20171025
  6. SPIRONOLACTONE. [Concomitant]
     Active Substance: SPIRONOLACTONE
     Indication: CARDIAC FAILURE
     Route: 048
     Dates: start: 20171010
  7. PHOSPHATIDYL CHOLINE [Concomitant]
     Active Substance: LECITHIN
     Indication: LIVER INJURY
     Route: 041
     Dates: start: 20171209, end: 20171214
  8. XARELTO [Suspect]
     Active Substance: RIVAROXABAN
     Indication: CEREBROVASCULAR ACCIDENT PROPHYLAXIS
     Route: 048
     Dates: start: 20171025
  9. CEDILANID                          /00007201/ [Concomitant]
     Indication: ATRIAL FIBRILLATION
     Route: 065
     Dates: start: 20171208, end: 20171211
  10. COENZYME COMPLEX [Concomitant]
     Active Substance: UNSPECIFIED INGREDIENT
     Indication: LIVER INJURY
     Route: 041
     Dates: start: 20171209, end: 20171214
  11. ASMETON [Concomitant]
     Active Substance: AMINOPHYLLINE\CHLORPHENIRAMINE MALEATE\METHOXYPHENAMINE HYDROCHLORIDE\NOSCAPINE
     Indication: COUGH
     Route: 048
     Dates: start: 20180131
  12. XARELTO [Suspect]
     Active Substance: RIVAROXABAN
     Indication: THROMBOSIS PROPHYLAXIS
     Route: 048
     Dates: start: 20171025
  13. WARFARIN [Concomitant]
     Active Substance: WARFARIN
     Route: 065
  14. BETALOC [Concomitant]
     Active Substance: METOPROLOL TARTRATE
     Indication: CARDIAC FAILURE
     Route: 048
     Dates: start: 20171010
  15. DIGOXIN. [Concomitant]
     Active Substance: DIGOXIN
     Indication: CARDIAC FAILURE
     Route: 048
     Dates: start: 20171010
  16. URSODEOXYCHOLIC ACID [Concomitant]
     Active Substance: URSODIOL
     Indication: GALLBLADDER DISORDER
     Route: 048
     Dates: start: 20171209, end: 20171214
  17. ASMETON [Concomitant]
     Active Substance: AMINOPHYLLINE\CHLORPHENIRAMINE MALEATE\METHOXYPHENAMINE HYDROCHLORIDE\NOSCAPINE
     Indication: COUGH
     Route: 048
  18. AMMONIA. [Concomitant]
     Active Substance: AMMONIA
     Indication: COUGH
     Route: 048
     Dates: start: 20180130

REACTIONS (2)
  - Congestive cardiomyopathy [Recovered/Resolved]
  - Congestive cardiomyopathy [Recovered/Resolved]

NARRATIVE: CASE EVENT DATE: 20180601
